FAERS Safety Report 19425120 (Version 1)
Quarter: 2021Q2

REPORT INFORMATION
  Report Type: Spontaneous
  Country: PL (occurrence: PL)
  Receive Date: 20210617
  Receipt Date: 20210617
  Transmission Date: 20210717
  Serious: Yes (Other)
  Sender: FDA-Public Use
  Company Number: PL-AMGEN-POLSP2021089028

PATIENT
  Sex: Female

DRUGS (1)
  1. PROLIA [Suspect]
     Active Substance: DENOSUMAB
     Indication: PRODUCT USED FOR UNKNOWN INDICATION
     Dosage: UNK
     Route: 065
     Dates: start: 202001

REACTIONS (7)
  - Blood pressure increased [Unknown]
  - Fall [Unknown]
  - Myalgia [Unknown]
  - Pain in extremity [Unknown]
  - Foot fracture [Unknown]
  - Ankle fracture [Unknown]
  - Arthralgia [Unknown]
